FAERS Safety Report 25440172 (Version 2)
Quarter: 2025Q2

REPORT INFORMATION
  Report Type: Spontaneous
  Country: US (occurrence: US)
  Receive Date: 20250616
  Receipt Date: 20250624
  Transmission Date: 20250716
  Serious: No
  Sender: PFIZER
  Company Number: US-PFIZER INC-202500018272

PATIENT
  Age: 7 Year
  Sex: Male

DRUGS (2)
  1. GENOTROPIN [Suspect]
     Active Substance: SOMATROPIN
     Dosage: 0.5 MG, DAILY
  2. GENOTROPIN [Suspect]
     Active Substance: SOMATROPIN

REACTIONS (3)
  - Device leakage [Unknown]
  - Device issue [Unknown]
  - Wrong technique in device usage process [Unknown]

NARRATIVE: CASE EVENT DATE: 20250603
